FAERS Safety Report 6086692-2 (Version None)
Quarter: 2009Q1

REPORT INFORMATION
  Report Type: 
  Country: None (occurrence: None)
  Receive Date: 20090223
  Receipt Date: 20081208
  Transmission Date: 20090719
  Serious: Yes (Hospitalization)
  Sender: FDA-Public Use
  Company Number: DE-PFIZER INC-2007002074

PATIENT

DRUGS (6)
  1. SUNITINIB MALATE [Suspect]
     Indication: NON-SMALL CELL LUNG CANCER
     Dosage: 37.5 MG, 1X/DAY, INTERVAL 1DAY 1-14
     Route: 048
     Dates: start: 20061222
  2. GEMCITABINE [Suspect]
     Indication: NON-SMALL CELL LUNG CANCER
     Dosage: 2100 MG, 1X/DAY, INTERVAL DAY 1 AND 8
     Route: 042
     Dates: start: 20061220
  3. CISPLATIN [Suspect]
     Indication: NON-SMALL CELL LUNG CANCER
     Dosage: 134.4 MG, 1X/DAY, INTERVAL DAY 1
     Dates: start: 20061220
  4. ALLOPURINOL [Concomitant]
     Route: 048
     Dates: start: 20061219, end: 20070102
  5. DEXAMETHASONE [Concomitant]
     Route: 048
     Dates: start: 20061220, end: 20061225
  6. PANTOPRAZOL [Concomitant]
     Route: 048
     Dates: start: 20061219, end: 20070102

REACTIONS (2)
  - DEHYDRATION [None]
  - TOOTH ABSCESS [None]
